FAERS Safety Report 8178120-8 (Version None)
Quarter: 2012Q1

REPORT INFORMATION
  Report Type: 
  Country: None (occurrence: None)
  Receive Date: 20120127
  Receipt Date: 20111212
  Transmission Date: 20120608
  Serious: Yes (Other)
  Sender: FDA-Public Use
  Company Number: AMAG201100253

PATIENT
  Age: 59 Year
  Sex: Male
  Weight: 92.1 kg

DRUGS (26)
  1. CRESTOR [Concomitant]
  2. ASPIRIN (ACETYLSALICYLIC ACID), 81 MG [Concomitant]
  3. ISOSORBIDE (ISOSORBIDE), 60 MG [Concomitant]
  4. PLAVIX [Concomitant]
  5. XOPENEX (LEVOSALBUTAMOL), 0.63 MG/ML [Concomitant]
  6. AVAPETON TABLET, 300 MG [Concomitant]
  7. FERAHEME [Suspect]
     Indication: IRON DEFICIENCY ANAEMIA
     Dosage: 510 MG, SINGLE, INTRAVENOUS
     Route: 042
     Dates: start: 20111205, end: 20111205
  8. LANTUS [Concomitant]
  9. MULTIVITAMIN [Concomitant]
  10. NOVOLOG [Concomitant]
  11. AMLODIPINE (AMLODIPINE MALEATE) TABLET, 200 MG [Concomitant]
  12. ATENOLOL (ATENOLOL), 100 MG [Concomitant]
  13. BUDESONIDE [Concomitant]
  14. CLONIDINE (CLONIDINE), 0.1 MG [Concomitant]
  15. FUROSEMIDE [Concomitant]
  16. LOVAZA (OMEGA-3 MARINE TRIGLYCERIDES), 1 G [Concomitant]
  17. SPIRIVA (TIOTROPIUM BROMIDE) INHALER, 18 UG [Concomitant]
  18. TYLENOL (PARACETAMOL) TABLET [Concomitant]
  19. OMEPRAZOLE [Concomitant]
  20. ASCORBIC ACID (ASCORBIC ACID), 500 MG [Concomitant]
  21. FERROUS SULFATE (FERROUS SULFATE), 325 MG [Concomitant]
  22. FUROSEMIDE [Concomitant]
  23. NITROGLYCERIN (NITROGLYCERIN), 0.4 MG [Concomitant]
  24. OXYGEN [Concomitant]
  25. AMITIZA (LUBIPROSTONE), 24 UG [Concomitant]
  26. THIAMINE (THIAMINE HYDROCHLORIDE), 100 MG [Concomitant]

REACTIONS (5)
  - DYSPNOEA [None]
  - OXYGEN SATURATION DECREASED [None]
  - HYPERHIDROSIS [None]
  - HYPERTENSION [None]
  - CHEST PAIN [None]
